FAERS Safety Report 11333185 (Version 1)
Quarter: 2015Q3

REPORT INFORMATION
  Report Type: Spontaneous
  Country: US (occurrence: US)
  Receive Date: 20150803
  Receipt Date: 20150803
  Transmission Date: 20151125
  Serious: Yes (Other)
  Sender: FDA-Public Use
  Company Number: US-ELI_LILLY_AND_COMPANY-US200707004878

PATIENT
  Sex: Female

DRUGS (3)
  1. ZYPREXA [Suspect]
     Active Substance: OLANZAPINE
     Indication: BIPOLAR DISORDER
     Dosage: UNK, UNK
  2. LITHIUM. [Concomitant]
     Active Substance: LITHIUM
  3. CLONOPIN [Concomitant]
     Active Substance: CLONAZEPAM
     Indication: ANXIETY

REACTIONS (5)
  - Pain [Unknown]
  - Food allergy [Unknown]
  - Pancreatitis [Not Recovered/Not Resolved]
  - Milk allergy [Unknown]
  - Swelling [Unknown]

NARRATIVE: CASE EVENT DATE: 2006
